FAERS Safety Report 7489909-2 (Version None)
Quarter: 2011Q2

REPORT INFORMATION
  Report Type: 
  Country: None (occurrence: None)
  Receive Date: 20110512
  Receipt Date: 20110429
  Transmission Date: 20111010
  Serious: Yes (Death, Hospitalization)
  Sender: FDA-Public Use
  Company Number: 2011CP000073

PATIENT
  Age: 82 Year
  Sex: Male

DRUGS (7)
  1. MEPERIDINE HCL [Suspect]
  2. ROPIVACAINE HYDROCHLORIDE [Suspect]
  3. ACETAMINOPHEN [Suspect]
     Indication: PAIN
     Dosage: ; IV
     Route: 042
  4. ASPIRIN [Suspect]
  5. LIDOCAINE [Suspect]
  6. CLOPIDOGREL BISULFATE [Suspect]
  7. FENTANYL [Suspect]
     Indication: ANALGESIC THERAPY

REACTIONS (2)
  - PULMONARY OEDEMA [None]
  - CARDIOPULMONARY FAILURE [None]
